FAERS Safety Report 23015303 (Version 1)
Quarter: 2023Q4

REPORT INFORMATION
  Report Type: Spontaneous
  Country: US (occurrence: US)
  Receive Date: 20231002
  Receipt Date: 20231002
  Transmission Date: 20240110
  Serious: No
  Sender: FDA-Public Use
  Company Number: US-AMGEN-USASP2023172227

PATIENT
  Age: 34 Year
  Sex: Female
  Weight: 79.365 kg

DRUGS (3)
  1. AIMOVIG [Suspect]
     Active Substance: ERENUMAB-AOOE
     Indication: Migraine
     Dosage: UNK
     Route: 065
  2. MAXALT [Concomitant]
     Active Substance: RIZATRIPTAN BENZOATE
     Indication: Migraine
     Route: 065
  3. DILTIAZEM [Concomitant]
     Active Substance: DILTIAZEM
     Indication: Blood pressure measurement

REACTIONS (8)
  - Blood glucose decreased [Unknown]
  - Erythema of eyelid [Unknown]
  - Hypertension [Unknown]
  - Nystagmus [Unknown]
  - Migraine [Unknown]
  - Vertigo [Unknown]
  - Dizziness [Unknown]
  - Carbon dioxide decreased [Unknown]
